FAERS Safety Report 14539556 (Version 4)
Quarter: 2019Q3

REPORT INFORMATION
  Report Type: Report from Study
  Country: FR (occurrence: FR)
  Receive Date: 20180216
  Receipt Date: 20190924
  Transmission Date: 20191004
  Serious: Yes (Death, Life-Threatening, Hospitalization, Other)
  Sender: FDA-Public Use
  Company Number: FR-ROCHE-2061444

PATIENT
  Age: 47 Year
  Sex: Female
  Weight: 45 kg

DRUGS (26)
  1. CAPECITABINE. [Suspect]
     Active Substance: CAPECITABINE
     Indication: PANCREATIC NEUROENDOCRINE TUMOUR METASTATIC
     Dosage: 750 MG/M2, 1X/DAY
     Route: 065
     Dates: start: 20140513, end: 20140620
  2. CAPECITABINE. [Suspect]
     Active Substance: CAPECITABINE
     Route: 048
     Dates: start: 20140715, end: 20150722
  3. OXYNORM [Concomitant]
     Active Substance: OXYCODONE HYDROCHLORIDE
     Indication: PAIN
     Dosage: 5 MG UP TO 6 DF, QD IF NEEDED
     Route: 048
     Dates: start: 20151014
  4. OXYNORMORO [Concomitant]
     Active Substance: OXYCODONE HYDROCHLORIDE
     Indication: PAIN
     Dosage: UP TO 6 PER DAY
     Route: 065
     Dates: start: 20151014
  5. SUTENT [Suspect]
     Active Substance: SUNITINIB MALATE
     Indication: PANCREATIC NEUROENDOCRINE TUMOUR METASTATIC
     Route: 065
     Dates: start: 20151105, end: 20160114
  6. SOMATULINE LP [Suspect]
     Active Substance: LANREOTIDE ACETATE
     Route: 065
  7. INNOHEP [Concomitant]
     Active Substance: TINZAPARIN SODIUM
     Indication: PORTAL VEIN THROMBOSIS
     Dosage: 0.4 ML, QD
     Route: 058
     Dates: start: 20151014
  8. PARACETAMOL [Concomitant]
     Active Substance: ACETAMINOPHEN
     Indication: PAIN
     Dosage: UNK
     Route: 065
     Dates: start: 2015
  9. SUTENT [Suspect]
     Active Substance: SUNITINIB MALATE
     Indication: PANCREATIC NEUROENDOCRINE TUMOUR
     Route: 065
  10. TEMODAL [Suspect]
     Active Substance: TEMOZOLOMIDE
     Indication: PANCREATIC NEUROENDOCRINE TUMOUR METASTATIC
     Dosage: 200 MG/M2, 1X/DAY
     Route: 065
     Dates: start: 20140513, end: 20140620
  11. LAROXYL [Concomitant]
     Active Substance: AMITRIPTYLINE HYDROCHLORIDE
     Indication: DEPRESSION
     Route: 065
  12. OROCAL D3 [Concomitant]
     Active Substance: CALCIUM CARBONATE\CHOLECALCIFEROL
     Indication: MINERAL SUPPLEMENTATION
     Route: 065
  13. MOVICOL [Concomitant]
     Active Substance: POLYETHYLENE GLYCOL 3350\POTASSIUM CHLORIDE\SODIUM BICARBONATE\SODIUM CHLORIDE
     Indication: CONSTIPATION
     Dosage: 2 TO 4 BAGS, DAILY
     Route: 048
  14. AFINITOR [Suspect]
     Active Substance: EVEROLIMUS
     Indication: PANCREATIC NEUROENDOCRINE TUMOUR
     Dosage: 10 MG, 1X/DAY
     Route: 065
     Dates: start: 20150804, end: 20151019
  15. XGEVA [Suspect]
     Active Substance: DENOSUMAB
     Indication: PANCREATIC NEUROENDOCRINE TUMOUR METASTATIC
     Dosage: 120 MG, CYCLIC (EVERY 4 WEEKS)
     Route: 065
     Dates: start: 201405
  16. KETOPROFEN. [Concomitant]
     Active Substance: KETOPROFEN
     Indication: INFLAMMATION
     Dosage: 100 MG, BID (IN THE MORNING AND IN THE EVENING)
     Route: 065
  17. PARACETAMOL [Concomitant]
     Active Substance: ACETAMINOPHEN
     Indication: BACK PAIN
     Dosage: UNK
     Route: 048
  18. SOMATULINE LP [Suspect]
     Active Substance: LANREOTIDE ACETATE
     Indication: PANCREATIC NEUROENDOCRINE TUMOUR METASTATIC
     Dosage: 120 MG, CYCLIC (EVERY 28 DAYS)
     Route: 065
     Dates: start: 20140414
  19. LAROXYL [Concomitant]
     Active Substance: AMITRIPTYLINE HYDROCHLORIDE
     Indication: NEURALGIA
     Dosage: UNIT DOSE: 25 [DRP] 25 DRP, QD IN EVENING
     Route: 065
     Dates: start: 20150902
  20. OROCAL D3 [Concomitant]
     Active Substance: CALCIUM CARBONATE\CHOLECALCIFEROL
     Indication: CALCIUM DEFICIENCY
     Dosage: 1 DF, BID
     Route: 065
     Dates: start: 20150722
  21. INNOHEP [Concomitant]
     Active Substance: TINZAPARIN SODIUM
     Indication: THROMBOSIS
     Route: 065
  22. OXYCONTIN [Concomitant]
     Active Substance: OXYCODONE HYDROCHLORIDE
     Indication: PAIN
     Dosage: 30 MG, BID (IN THE MORNING AND IN THE EVENING)
     Route: 065
     Dates: start: 20151014
  23. BI-PROFENID [Concomitant]
     Active Substance: KETOPROFEN
     Indication: BACK PAIN
     Dosage: UNK
     Route: 048
     Dates: start: 2015
  24. KETOPROFEN. [Concomitant]
     Active Substance: KETOPROFEN
     Indication: PAIN
     Dosage: 100 MG, 2X/DAY, MORNING AND EVENING
     Route: 048
  25. ACTISKENAN [Concomitant]
     Active Substance: MORPHINE SULFATE
     Indication: BACK PAIN
     Dosage: UNK
     Route: 048
     Dates: start: 2015
  26. NEULASTA [Concomitant]
     Active Substance: PEGFILGRASTIM
     Indication: PROPHYLAXIS
     Dosage: UNK
     Route: 065

REACTIONS (26)
  - Abdominal discomfort [Unknown]
  - Weight increased [Unknown]
  - Constipation [Recovered/Resolved]
  - Spinal pain [Fatal]
  - Vomiting [Fatal]
  - Hypoaesthesia [Fatal]
  - Faecaloma [Recovered/Resolved]
  - Asthenia [Recovered/Resolved]
  - Neutropenia [Fatal]
  - General physical health deterioration [Fatal]
  - Faeces discoloured [Fatal]
  - Abdominal distension [Unknown]
  - Tachycardia [Recovered/Resolved]
  - Stomatitis [Recovered/Resolved]
  - Abdominal pain [Unknown]
  - Out of specification test results [Fatal]
  - Weight decreased [Fatal]
  - Abdominal pain upper [Unknown]
  - Oedema peripheral [Not Recovered/Not Resolved]
  - Neoplasm progression [Fatal]
  - Haematochezia [Unknown]
  - Diarrhoea [Recovered/Resolved]
  - Nausea [Recovered/Resolved]
  - Rash [Recovered/Resolved]
  - Abnormal faeces [Unknown]
  - Hypophosphataemia [Fatal]

NARRATIVE: CASE EVENT DATE: 201508
